FAERS Safety Report 19251748 (Version 2)
Quarter: 2021Q2

REPORT INFORMATION
  Report Type: Spontaneous
  Country: LT (occurrence: LT)
  Receive Date: 20210513
  Receipt Date: 20210519
  Transmission Date: 20210717
  Serious: Yes (Hospitalization, Other)
  Sender: FDA-Public Use
  Company Number: LT-JNJFOC-20210444589

PATIENT
  Age: 55 Year
  Sex: Female

DRUGS (10)
  1. HALOPERIDOL. [Suspect]
     Active Substance: HALOPERIDOL
     Indication: PSYCHOTIC DISORDER
  2. TRIHEXYPHENIDYL HYDROCHLORIDE. [Suspect]
     Active Substance: TRIHEXYPHENIDYL HYDROCHLORIDE
     Indication: DELUSIONAL DISORDER, UNSPECIFIED TYPE
  3. HALDOL DECANOATE [Suspect]
     Active Substance: HALOPERIDOL DECANOATE
     Indication: DELUSIONAL DISORDER, UNSPECIFIED TYPE
     Route: 065
  4. CISORDINOL [ZUCLOPENTHIXOL HYDROCHLORIDE] [Suspect]
     Active Substance: ZUCLOPENTHIXOL
     Indication: DELIRIUM
     Route: 065
  5. TRIHEXYPHENIDYL HYDROCHLORIDE. [Suspect]
     Active Substance: TRIHEXYPHENIDYL HYDROCHLORIDE
     Indication: DELIRIUM
     Route: 065
  6. ZUCLOPENTIXOL [Suspect]
     Active Substance: ZUCLOPENTHIXOL
     Indication: DELIRIUM
     Route: 065
  7. HALOPERIDOL. [Suspect]
     Active Substance: HALOPERIDOL
     Indication: DELIRIUM
     Dosage: 70.52 MG EVERY TWO WEEKS
     Route: 065
  8. TRIHEXYPHENIDYL HYDROCHLORIDE. [Suspect]
     Active Substance: TRIHEXYPHENIDYL HYDROCHLORIDE
     Indication: PSYCHOTIC DISORDER
     Dosage: 6 MG, PER DAY
     Route: 065
  9. CISORDINOL [ZUCLOPENTHIXOL HYDROCHLORIDE] [Suspect]
     Active Substance: ZUCLOPENTHIXOL
     Indication: DELUSIONAL DISORDER, UNSPECIFIED TYPE
     Route: 065
  10. MIRTAZAPINE. [Suspect]
     Active Substance: MIRTAZAPINE
     Indication: DELIRIUM
     Dosage: UNK
     Route: 065
     Dates: start: 2009

REACTIONS (6)
  - Tardive dyskinesia [Unknown]
  - Decreased appetite [Recovered/Resolved]
  - Decreased appetite [Unknown]
  - Dystonia [Recovered/Resolved]
  - Syncope [Recovered/Resolved]
  - Off label use [Unknown]
